FAERS Safety Report 9329702 (Version 1)
Quarter: 2013Q2

REPORT INFORMATION
  Report Type: Spontaneous
  Country: US (occurrence: US)
  Receive Date: 20130604
  Receipt Date: 20130604
  Transmission Date: 20140414
  Serious: No
  Sender: FDA-Public Use
  Company Number: US-SANOFI-AVENTIS-2013SA001447

PATIENT
  Age: 39 Year
  Sex: Female

DRUGS (6)
  1. LANTUS [Suspect]
     Dosage: DOSE:100 INTERNATIONAL UNIT(S)/MILLILITRE
     Route: 051
  2. LANTUS SOLOSTAR [Suspect]
     Dosage: DOSE:25 UNIT(S)
     Route: 051
     Dates: start: 201208
  3. SOLOSTAR [Suspect]
     Dates: start: 201208
  4. APIDRA SOLOSTAR [Suspect]
     Indication: TYPE 2 DIABETES MELLITUS
     Dosage: DOSE:8 UNIT(S)
     Route: 058
     Dates: start: 201208
  5. SOLOSTAR [Suspect]
     Dates: start: 201208
  6. INSULIN DETEMIR [Suspect]
     Route: 065

REACTIONS (1)
  - Flatulence [Unknown]
